FAERS Safety Report 21688502 (Version 1)
Quarter: 2022Q4

REPORT INFORMATION
  Report Type: Spontaneous
  Country: CN (occurrence: CN)
  Receive Date: 20221206
  Receipt Date: 20221206
  Transmission Date: 20230113
  Serious: Yes (Other)
  Sender: FDA-Public Use
  Company Number: CN-JNJFOC-20221207597

PATIENT
  Age: 1 Month
  Sex: Male
  Weight: 3.1 kg

DRUGS (1)
  1. MOTRIN INFANTS [Suspect]
     Active Substance: IBUPROFEN
     Indication: Patent ductus arteriosus
     Dosage: 2 TIMES IN 1 DAY
     Route: 048
     Dates: start: 20221021, end: 20221022

REACTIONS (1)
  - Necrotising enterocolitis neonatal [Unknown]

NARRATIVE: CASE EVENT DATE: 20221022
